FAERS Safety Report 26174123 (Version 1)
Quarter: 2025Q4

REPORT INFORMATION
  Report Type: Spontaneous
  Country: US (occurrence: None)
  Receive Date: 20251217
  Receipt Date: 20251217
  Transmission Date: 20260118
  Serious: Yes (Hospitalization)
  Sender: FDA-CTU
  Company Number: None

PATIENT
  Sex: Female

DRUGS (1)
  1. ZARXIO [Suspect]
     Active Substance: FILGRASTIM-SNDZ
     Indication: Stem cell transplant
     Dosage: 300 UG MICROGRAM(S) DAILY SUBCUTANEOUS
     Route: 058
     Dates: start: 20251122

REACTIONS (1)
  - Speech disorder [None]
